FAERS Safety Report 5405389-2 (Version None)
Quarter: 2007Q3

REPORT INFORMATION
  Report Type: 
  Country: None (occurrence: None)
  Receive Date: 20070803
  Receipt Date: 20070731
  Transmission Date: 20080115
  Serious: Yes (Hospitalization)
  Sender: FDA-Public Use
  Company Number: AU-ROXANE LABORATORIES, INC-2007-BP-18297RO

PATIENT
  Age: 43 Year
  Sex: Female

DRUGS (9)
  1. CYCLOPHOSPHAMIDE [Suspect]
     Indication: CHEMOTHERAPY
     Dosage: 1000 MG 3-WEEKY/CYCLE X 3 CYCLES
     Route: 042
  2. CYCLOPHOSPHAMIDE [Suspect]
     Dosage: 900 MG 3-WEEKY/CYCLE X 1 CYCLE
     Route: 042
  3. ONDANSETRON [Suspect]
     Indication: VOMITING
  4. DEXAMETHASONE 0.5MG TAB [Suspect]
     Indication: VOMITING
  5. DOXORUBICIN [Suspect]
     Indication: CHEMOTHERAPY
     Dosage: 110 MG 3-WEEKY/CYCLE X 3 CYCLES
     Route: 042
  6. DOXORUBICIN [Suspect]
     Dosage: 90 MG 3-WEEKY/CYCLE X 1 CYCLE
     Route: 042
  7. METOCLOPRAMIDE [Suspect]
     Indication: VOMITING
  8. PROCHLORPERAZINE [Suspect]
     Indication: VOMITING
  9. APREPITANT [Suspect]
     Indication: VOMITING

REACTIONS (5)
  - DRUG INEFFECTIVE [None]
  - DYSAESTHESIA [None]
  - NEUTROPENIA [None]
  - PALMAR-PLANTAR ERYTHRODYSAESTHESIA SYNDROME [None]
  - RASH ERYTHEMATOUS [None]
